FAERS Safety Report 23202069 (Version 3)
Quarter: 2023Q4

REPORT INFORMATION
  Report Type: Spontaneous
  Country: JP (occurrence: JP)
  Receive Date: 20231120
  Receipt Date: 20231214
  Transmission Date: 20240110
  Serious: Yes (Hospitalization, Other)
  Sender: FDA-Public Use
  Company Number: JP-SA-2023SA353660

PATIENT
  Age: 50 Year
  Sex: Male

DRUGS (8)
  1. CABLIVI [Suspect]
     Active Substance: CAPLACIZUMAB-YHDP
     Indication: Thrombotic thrombocytopenic purpura
     Dosage: DAILY DOSE: 10 MG
     Route: 065
     Dates: start: 20231108, end: 20231112
  2. CABLIVI [Suspect]
     Active Substance: CAPLACIZUMAB-YHDP
     Indication: Thrombotic thrombocytopenic purpura
     Dosage: DAILY DOSE: 10 MG
     Route: 065
     Dates: start: 20231108, end: 20231112
  3. CABLIVI [Suspect]
     Active Substance: CAPLACIZUMAB-YHDP
     Indication: Thrombotic thrombocytopenic purpura
     Dosage: DAILY DOSE: 10 MG
     Route: 065
     Dates: start: 20231108, end: 20231112
  4. CABLIVI [Suspect]
     Active Substance: CAPLACIZUMAB-YHDP
     Indication: Thrombotic thrombocytopenic purpura
     Dosage: DAILY DOSE: 10 MG
     Route: 065
     Dates: start: 20231108, end: 20231112
  5. CABLIVI [Suspect]
     Active Substance: CAPLACIZUMAB-YHDP
     Dosage: UNK
     Route: 065
     Dates: start: 20231121
  6. CABLIVI [Suspect]
     Active Substance: CAPLACIZUMAB-YHDP
     Dosage: UNK
     Route: 065
     Dates: start: 20231121
  7. CABLIVI [Suspect]
     Active Substance: CAPLACIZUMAB-YHDP
     Dosage: UNK
     Route: 065
     Dates: start: 20231121
  8. CABLIVI [Suspect]
     Active Substance: CAPLACIZUMAB-YHDP
     Dosage: UNK
     Route: 065
     Dates: start: 20231121

REACTIONS (2)
  - Pharyngeal oedema [Unknown]
  - Altered state of consciousness [Unknown]

NARRATIVE: CASE EVENT DATE: 20231101
